FAERS Safety Report 4320459-8 (Version None)
Quarter: 2004Q1

REPORT INFORMATION
  Report Type: 
  Country: None (occurrence: None)
  Receive Date: 20040319
  Receipt Date: 20040319
  Transmission Date: 20041129
  Serious: No
  Sender: FDA-Public Use
  Company Number: None

PATIENT
  Age: 60 Year
  Sex: Male

DRUGS (6)
  1. LEVOFLOXACIN [Suspect]
     Dosage: 500 MG Q24H
     Dates: start: 20040210, end: 20040217
  2. FAMOTIDINE [Concomitant]
  3. METRONIDAZOLE [Concomitant]
  4. MORPHINE [Concomitant]
  5. LOPRESSOR [Concomitant]
  6. MIDAZOLAM HCL [Concomitant]

REACTIONS (2)
  - CONDITION AGGRAVATED [None]
  - CONVULSION [None]
